FAERS Safety Report 8608084-1 (Version None)
Quarter: 2012Q3

REPORT INFORMATION
  Report Type: 
  Country: None (occurrence: None)
  Receive Date: 20120821
  Receipt Date: 20120816
  Transmission Date: 20120928
  Serious: Yes (Other)
  Sender: FDA-Public Use
  Company Number: PHEH2012US014092

PATIENT
  Sex: Female

DRUGS (9)
  1. XANAX [Concomitant]
     Dosage: UNK UKN, UNK
  2. ASPIRIN [Concomitant]
     Dosage: UNK UKN, UNK
  3. CELEXA [Concomitant]
     Dosage: UNK UKN, UNK
  4. NEUROTON [Concomitant]
     Dosage: UNK UKN, UNK
  5. ETODOLAC [Concomitant]
     Dosage: UNK UKN, UNK
  6. GABAPENTIN [Concomitant]
  7. VITAMIN D [Concomitant]
     Dosage: UNK UKN, UNK
  8. DIOVAN [Suspect]
     Indication: BLOOD PRESSURE
     Dosage: 320 MG, QD
     Route: 048
  9. ZOCOR [Concomitant]
     Dosage: UNK UKN, UNK

REACTIONS (9)
  - AMNESIA [None]
  - INFECTIOUS MONONUCLEOSIS [None]
  - ARTHRALGIA [None]
  - FATIGUE [None]
  - MEMORY IMPAIRMENT [None]
  - DISTURBANCE IN ATTENTION [None]
  - DEPRESSION [None]
  - LYME DISEASE [None]
  - PSEUDODEMENTIA [None]
